FAERS Safety Report 15049197 (Version 2)
Quarter: 2018Q4

REPORT INFORMATION
  Report Type: Spontaneous
  Country: SE (occurrence: SE)
  Receive Date: 20180622
  Receipt Date: 20181009
  Transmission Date: 20190204
  Serious: Yes (Death, Other)
  Sender: FDA-Public Use
  Company Number: SE-ACCORD-068704

PATIENT
  Age: 79 Year
  Sex: Male

DRUGS (8)
  1. CASODEX [Concomitant]
     Active Substance: BICALUTAMIDE
     Dosage: STRENGTH: 150 MG
  2. CAPECITABINE. [Suspect]
     Active Substance: CAPECITABINE
     Indication: RECTAL CANCER
     Route: 048
     Dates: start: 20171025, end: 20171113
  3. MINIFOM [Concomitant]
     Dosage: STRENGTH: 200 MG
  4. ONDANSETRON [Concomitant]
     Active Substance: ONDANSETRON
     Dosage: AS NECESSARY
  5. IMODIUM [Concomitant]
     Active Substance: LOPERAMIDE HYDROCHLORIDE
     Dosage: STRENGTH: 2 MG
  6. ENALAPRIL/HYDROCHLOROTHIAZIDE [Concomitant]
  7. PRIMPERAN [Concomitant]
     Active Substance: METOCLOPRAMIDE HYDROCHLORIDE
     Dosage: STRENGTH: 10 MG
  8. OMEPRAZOLE. [Concomitant]
     Active Substance: OMEPRAZOLE
     Dosage: AS NECESSARY

REACTIONS (3)
  - Diarrhoea [Unknown]
  - Cardiac arrest [Fatal]
  - Arrhythmia [Fatal]

NARRATIVE: CASE EVENT DATE: 2017
